FAERS Safety Report 16168978 (Version 5)
Quarter: 2019Q2

REPORT INFORMATION
  Report Type: Spontaneous
  Country: IT (occurrence: IT)
  Receive Date: 20190408
  Receipt Date: 20190603
  Transmission Date: 20190711
  Serious: Yes (Hospitalization, Other)
  Sender: FDA-Public Use
  Company Number: IT-PFIZER INC-2019145864

PATIENT
  Age: 78 Year
  Sex: Female

DRUGS (11)
  1. NOVONORM [Suspect]
     Active Substance: REPAGLINIDE
     Indication: DRUG ABUSE
     Dosage: 14 DF, UNK (TOTAL)
     Route: 048
     Dates: start: 20190227, end: 20190227
  2. SIMVASTATIN. [Suspect]
     Active Substance: SIMVASTATIN
     Indication: DRUG ABUSE
     Dosage: 140 MG, UNK (TOTAL)
     Route: 048
     Dates: start: 20190227, end: 20190227
  3. BARNIDIPINE HYDROCHLORIDE [Suspect]
     Active Substance: BARNIDIPINE HYDROCHLORIDE
     Indication: DRUG ABUSE
     Dosage: 140 MG, UNK (TOTAL)
     Route: 048
     Dates: start: 20190227, end: 20190227
  4. FUROSEMIDE. [Suspect]
     Active Substance: FUROSEMIDE
     Indication: DRUG ABUSE
     Dosage: 525 MG, UNK (TOTAL)
     Route: 048
     Dates: start: 20190227, end: 20190227
  5. BISOPROLOL FUMARATE. [Suspect]
     Active Substance: BISOPROLOL FUMARATE
     Indication: DRUG ABUSE
     Dosage: 35 MG, UNK (TOTAL)
     Route: 048
     Dates: start: 20190227, end: 20190227
  6. LYRICA [Suspect]
     Active Substance: PREGABALIN
     Indication: DRUG ABUSE
     Dosage: 14 DF, UNK (TOTAL)
     Route: 048
     Dates: start: 20190227, end: 20190227
  7. FERRO-GRAD [Suspect]
     Active Substance: FERROUS SULFATE
     Indication: DRUG ABUSE
     Dosage: 7 DF, UNK (TOTAL)
     Route: 048
     Dates: start: 20190227, end: 20190227
  8. CARDIOASPIRIN [Suspect]
     Active Substance: ASPIRIN
     Indication: DRUG ABUSE
     Dosage: 7 DF, 1X/DAY
     Route: 048
     Dates: start: 20190227, end: 20190227
  9. OLANZAPINE. [Suspect]
     Active Substance: OLANZAPINE
     Indication: DRUG ABUSE
     Dosage: 175 MG, UNK (TOTAL)
     Route: 048
     Dates: start: 20190227, end: 20190227
  10. RAMIPRIL. [Suspect]
     Active Substance: RAMIPRIL
     Indication: DRUG ABUSE
     Dosage: 35 MG, UNK (TOTAL)
     Route: 048
     Dates: start: 20190227, end: 20190227
  11. EFEXOR [Suspect]
     Active Substance: VENLAFAXINE HYDROCHLORIDE
     Indication: DRUG ABUSE
     Dosage: 7 DF, UNK (TOTAL)
     Route: 048
     Dates: start: 20190227, end: 20190227

REACTIONS (4)
  - Sopor [Recovering/Resolving]
  - Drug abuse [Unknown]
  - Electrocardiogram QT prolonged [Recovering/Resolving]
  - Hypoxia [Recovering/Resolving]

NARRATIVE: CASE EVENT DATE: 20190227
